FAERS Safety Report 12949836 (Version 1)
Quarter: 2016Q4

REPORT INFORMATION
  Report Type: Spontaneous
  Country: CN (occurrence: CN)
  Receive Date: 20161117
  Receipt Date: 20161117
  Transmission Date: 20170207
  Serious: Yes (Other)
  Sender: FDA-Public Use
  Company Number: CN-PFIZER INC-2016533744

PATIENT
  Age: 70 Year
  Sex: Male
  Weight: 69 kg

DRUGS (3)
  1. ZOLOFT [Suspect]
     Active Substance: SERTRALINE HYDROCHLORIDE
     Indication: DEPRESSION
     Dosage: 100 MG, 1X/DAY
     Route: 048
     Dates: start: 20090101, end: 20160815
  2. ZOLOFT [Suspect]
     Active Substance: SERTRALINE HYDROCHLORIDE
     Indication: OBSESSIVE-COMPULSIVE DISORDER
  3. ZYPREXA [Suspect]
     Active Substance: OLANZAPINE
     Indication: MENTAL DISORDER
     Dosage: 25 MG, 1X/DAY
     Route: 048
     Dates: start: 20160705, end: 20160713

REACTIONS (3)
  - Platelet count decreased [Not Recovered/Not Resolved]
  - Blood chloride decreased [Not Recovered/Not Resolved]
  - Blood sodium decreased [Not Recovered/Not Resolved]

NARRATIVE: CASE EVENT DATE: 20160705
